FAERS Safety Report 7432825-2 (Version None)
Quarter: 2011Q2

REPORT INFORMATION
  Report Type: 
  Country: None (occurrence: None)
  Receive Date: 20110422
  Receipt Date: 20110412
  Transmission Date: 20111010
  Serious: Yes (Hospitalization, Other)
  Sender: FDA-Public Use
  Company Number: US-PERRIGO-11US003070

PATIENT
  Sex: Female
  Weight: 72.562 kg

DRUGS (17)
  1. CETIRIZINE 10MG 4H2 [Suspect]
     Indication: SINUS DISORDER
     Dosage: 10 MG, QD, AS NEEDED
     Route: 048
     Dates: start: 20110408
  2. MENEST [Concomitant]
     Indication: PRODUCT USED FOR UNKNOWN INDICATION
     Dosage: 0.625 MG, QD
     Route: 048
     Dates: start: 20050101
  3. ZYRTEC [Suspect]
     Indication: SINUS DISORDER
     Dosage: 10 MG, QD, AS NEEDED
     Route: 048
     Dates: start: 20110406, end: 20110407
  4. CYMBALTA [Concomitant]
     Indication: PRODUCT USED FOR UNKNOWN INDICATION
     Dosage: 60 MG, QD
     Route: 048
  5. FLONASE [Concomitant]
     Indication: PRODUCT USED FOR UNKNOWN INDICATION
     Dosage: 50 MG, 2 SPRAYS\NOSTRIL DAILY
     Route: 045
  6. CETIRIZINE 10MG 4H2 [Suspect]
     Indication: OROPHARYNGEAL PAIN
  7. VALPROIC ACID [Concomitant]
     Indication: PRODUCT USED FOR UNKNOWN INDICATION
     Dosage: 500 MG, BID
     Route: 048
     Dates: start: 20090101
  8. IBUPROFEN [Concomitant]
     Indication: BACK DISORDER
     Dosage: 800 MG, TID
     Route: 048
  9. IBUPROFEN [Concomitant]
     Indication: SCAR
  10. ZYRTEC [Suspect]
     Indication: OROPHARYNGEAL PAIN
  11. CYCLOBENZAPRINE [Concomitant]
     Indication: PRODUCT USED FOR UNKNOWN INDICATION
     Dosage: 10 MG, QD
     Route: 048
     Dates: start: 20090101
  12. LOPRESSOR [Concomitant]
     Indication: PRODUCT USED FOR UNKNOWN INDICATION
     Dosage: 50 MG, BID
     Route: 048
  13. SEROQUEL [Concomitant]
     Indication: PRODUCT USED FOR UNKNOWN INDICATION
     Dosage: 100 MG, BID
     Route: 048
  14. CATAPRES [Concomitant]
     Indication: PRODUCT USED FOR UNKNOWN INDICATION
     Dosage: 0.1MG, PATCH
     Route: 062
     Dates: start: 20100101
  15. ATARAX [Concomitant]
     Indication: PRODUCT USED FOR UNKNOWN INDICATION
     Dosage: 20 MG, QD
     Route: 048
  16. IBUPROFEN [Concomitant]
     Indication: NERVE INJURY
  17. LORTAB [Concomitant]
     Indication: PAIN
     Dosage: 5/500MG TABLET
     Route: 048
     Dates: end: 20110409

REACTIONS (15)
  - STOMATITIS [None]
  - PHARYNGEAL ERYTHEMA [None]
  - APHAGIA [None]
  - THROAT LESION [None]
  - SPEECH DISORDER [None]
  - MOUTH INJURY [None]
  - PERIORBITAL DISORDER [None]
  - TONGUE DRY [None]
  - DYSPNOEA [None]
  - CONDITION AGGRAVATED [None]
  - LOCAL SWELLING [None]
  - SWELLING FACE [None]
  - WEIGHT INCREASED [None]
  - ORAL DISORDER [None]
  - ERYTHEMA [None]
